FAERS Safety Report 5152167-8 (Version None)
Quarter: 2006Q4

REPORT INFORMATION
  Report Type: 
  Country: None (occurrence: None)
  Receive Date: 20061116
  Receipt Date: 20060829
  Transmission Date: 20070319
  Serious: Yes (Life-Threatening, Hospitalization)
  Sender: FDA-Public Use
  Company Number: JP-JPN-A200603411

PATIENT
  Age: 64 Year
  Sex: Male
  Weight: 63 kg

DRUGS (35)
  1. FLOLAN [Suspect]
     Indication: PULMONARY HYPERTENSION
     Dosage: .5MG PER DAY
     Route: 042
     Dates: start: 20060728, end: 20060828
  2. PROPOFOL [Suspect]
     Route: 042
     Dates: start: 20060728, end: 20060825
  3. HEPARIN [Suspect]
     Route: 042
     Dates: start: 20060728, end: 20060825
  4. BIOFERMIN [Suspect]
     Route: 048
     Dates: start: 20060815, end: 20060828
  5. DAI-KENCHU-TO [Suspect]
     Route: 048
     Dates: end: 20060828
  6. SERENACE [Suspect]
     Route: 042
     Dates: start: 20060822, end: 20060828
  7. INTRALIPID 10% [Suspect]
     Route: 042
     Dates: start: 20060813, end: 20060902
  8. P N TWIN [Suspect]
     Route: 042
     Dates: start: 20060729, end: 20060903
  9. NEOLAMIN [Suspect]
     Route: 042
     Dates: start: 20060729, end: 20060903
  10. MEDLENIK [Suspect]
     Route: 042
     Dates: start: 20060729, end: 20060903
  11. PANTOL [Suspect]
     Dosage: 500MG PER DAY
     Route: 042
     Dates: start: 20060730, end: 20060828
  12. PRIMPERAN TAB [Suspect]
     Dates: start: 20060821, end: 20060828
  13. HALOPERIDOL [Suspect]
  14. SOYBEAN OIL [Suspect]
  15. AMINO ACID + TOTAL PARENTERAL NUTRITION [Suspect]
  16. ANTIBIOTIC-RESISTANT LACTIC ACID BACTERIA [Suspect]
  17. MINOCYCLINE HCL [Concomitant]
     Route: 065
  18. MARZULENE S [Concomitant]
     Route: 048
  19. DORMICUM [Concomitant]
     Route: 042
     Dates: start: 20060813, end: 20060818
  20. JAPANESE MEDICATION [Concomitant]
     Route: 042
     Dates: start: 20060728
  21. CEFAMEZIN [Concomitant]
     Route: 042
     Dates: start: 20060728, end: 20060802
  22. TIENAM [Concomitant]
     Route: 042
     Dates: start: 20060802, end: 20060806
  23. MEDLENIK [Concomitant]
     Route: 042
     Dates: start: 20060729, end: 20060903
  24. FAMOTIDINE [Concomitant]
     Route: 042
     Dates: start: 20060729, end: 20060813
  25. LASIX [Concomitant]
     Route: 042
     Dates: start: 20060728
  26. VANCOMYCIN [Concomitant]
     Route: 042
     Dates: start: 20060806, end: 20060813
  27. HANP [Concomitant]
     Route: 042
     Dates: start: 20060729, end: 20060810
  28. DIAMOX [Concomitant]
     Route: 042
     Dates: start: 20060731, end: 20060811
  29. SOLDACTONE [Concomitant]
     Dosage: 200MG PER DAY
     Route: 042
     Dates: start: 20060731, end: 20060811
  30. PANTOL [Concomitant]
     Route: 042
     Dates: start: 20060801, end: 20060802
  31. ENALAPRIL MALEATE [Concomitant]
     Dates: end: 20060813
  32. METOCLOPRAMIDE [Concomitant]
     Dates: start: 20060822
  33. IMMUNE GLOBULIN INTRAVENOUS (HUMAN) [Concomitant]
     Dosage: 20G PER DAY
     Dates: start: 20060831, end: 20060902
  34. CEFAMEZIN [Concomitant]
     Dosage: 2G PER DAY
     Route: 042
     Dates: start: 20060728, end: 20060802
  35. FAMOTIDINE [Concomitant]
     Route: 042
     Dates: start: 20060729, end: 20060813

REACTIONS (5)
  - BLISTER [None]
  - EPIDERMOLYSIS [None]
  - ERYTHEMA MULTIFORME [None]
  - STEVENS-JOHNSON SYNDROME [None]
  - TOXIC EPIDERMAL NECROLYSIS [None]
